FAERS Safety Report 7425418-4 (Version None)
Quarter: 2011Q2

REPORT INFORMATION
  Report Type: 
  Country: None (occurrence: None)
  Receive Date: 20110415
  Receipt Date: 20110415
  Transmission Date: 20111010
  Serious: Yes (Other)
  Sender: FDA-Public Use
  Company Number: None

PATIENT
  Age: 63 Year
  Sex: Male
  Weight: 111.1313 kg

DRUGS (1)
  1. NUVIGIL [Suspect]
     Indication: NARCOLEPSY
     Dosage: 225 MG ONCE A DAY IN AM PO
     Route: 048
     Dates: start: 20101014, end: 20101231

REACTIONS (7)
  - SOCIAL AVOIDANT BEHAVIOUR [None]
  - DECREASED INTEREST [None]
  - DISTURBANCE IN ATTENTION [None]
  - PRODUCT SUBSTITUTION ISSUE [None]
  - DEPRESSION [None]
  - ANGER [None]
  - SLEEP DISORDER [None]
